FAERS Safety Report 9835226 (Version 1)
Quarter: 2014Q1

REPORT INFORMATION
  Report Type: Spontaneous
  Country: US (occurrence: US)
  Receive Date: 20140122
  Receipt Date: 20140122
  Transmission Date: 20141002
  Serious: No
  Sender: FDA-Public Use
  Company Number: US-BRISTOL-MYERS SQUIBB COMPANY-19877372

PATIENT
  Age: 70 Year
  Sex: 0

DRUGS (2)
  1. ELIQUIS [Suspect]
  2. LIPITOR [Suspect]

REACTIONS (1)
  - Hepatic enzyme increased [Unknown]
